FAERS Safety Report 14660394 (Version 3)
Quarter: 2018Q2

REPORT INFORMATION
  Report Type: Spontaneous
  Country: US (occurrence: US)
  Receive Date: 20180320
  Receipt Date: 20180403
  Transmission Date: 20180711
  Serious: No
  Sender: FDA-Public Use
  Company Number: US-GLAXOSMITHKLINE-US2018GSK047185

PATIENT
  Sex: Female

DRUGS (7)
  1. RANITIDINE HYDROCHLORIDE. [Suspect]
     Active Substance: RANITIDINE HYDROCHLORIDE
     Indication: CHEST PAIN
  2. RANITIDINE HYDROCHLORIDE. [Suspect]
     Active Substance: RANITIDINE HYDROCHLORIDE
     Indication: GASTROOESOPHAGEAL REFLUX DISEASE
  3. PEPCID [Suspect]
     Active Substance: FAMOTIDINE
     Indication: GASTROOESOPHAGEAL REFLUX DISEASE
  4. PEPCID [Suspect]
     Active Substance: FAMOTIDINE
     Indication: ABDOMINAL PAIN UPPER
  5. XELJANZ [Suspect]
     Active Substance: TOFACITINIB CITRATE
     Indication: RHEUMATOID ARTHRITIS
     Dosage: 5 MG, BID
     Route: 048
  6. PEPCID [Suspect]
     Active Substance: FAMOTIDINE
     Indication: CHEST PAIN
     Dosage: 40 MG, QD
  7. RANITIDINE HYDROCHLORIDE. [Suspect]
     Active Substance: RANITIDINE HYDROCHLORIDE
     Indication: ABDOMINAL PAIN UPPER

REACTIONS (4)
  - Acne [Unknown]
  - Rash [Unknown]
  - Drug ineffective [Unknown]
  - Headache [Unknown]
